FAERS Safety Report 10015686 (Version 1)
Quarter: 2014Q1

REPORT INFORMATION
  Report Type: Spontaneous
  Country: US (occurrence: US)
  Receive Date: 20140317
  Receipt Date: 20140317
  Transmission Date: 20141002
  Serious: No
  Sender: FDA-Public Use
  Company Number: US-PFIZER INC-2014072455

PATIENT
  Age: 72 Year
  Sex: Female

DRUGS (6)
  1. NORVASC [Suspect]
     Dosage: UNK
  2. HYDROCHLOROTHIAZIDE [Suspect]
     Dosage: UNK
  3. ATENOLOL [Suspect]
     Dosage: UNK
  4. LOPRESSOR [Suspect]
     Dosage: UNK
  5. TENORMIN [Suspect]
     Dosage: UNK
  6. CLONIDINE [Suspect]
     Dosage: UNK

REACTIONS (2)
  - Drug hypersensitivity [Unknown]
  - Drug intolerance [Unknown]
